FAERS Safety Report 11607783 (Version 1)
Quarter: 2015Q4

REPORT INFORMATION
  Report Type: Spontaneous
  Country: DE (occurrence: DE)
  Receive Date: 20151007
  Receipt Date: 20151007
  Transmission Date: 20160304
  Serious: Yes (Other)
  Sender: FDA-Public Use
  Company Number: DE-TAKEDA-2015TUS013572

PATIENT

DRUGS (18)
  1. PRADAXA [Concomitant]
     Active Substance: DABIGATRAN ETEXILATE MESYLATE
     Indication: THROMBOSIS PROPHYLAXIS
     Route: 048
  2. TOREM COR [Concomitant]
     Indication: POLYURIA
     Route: 048
  3. ATOSIL                             /00033002/ [Concomitant]
     Active Substance: PROMETHAZINE HYDROCHLORIDE
     Indication: INSOMNIA
     Route: 048
  4. CITALOPRAM [Concomitant]
     Active Substance: CITALOPRAM HYDROBROMIDE
     Indication: DEPRESSION
     Route: 048
  5. PASPERTIN                          /00041902/ [Concomitant]
     Active Substance: METOCLOPRAMIDE HYDROCHLORIDE
     Indication: NAUSEA
     Route: 048
  6. OLIMEL [Concomitant]
     Active Substance: AMINO ACIDS\DEXTROSE\SOYBEAN OIL
     Indication: NUTRITIONAL SUPPLEMENTATION
     Dosage: UNK
     Route: 042
     Dates: start: 20130730
  7. ADENURIC [Suspect]
     Active Substance: FEBUXOSTAT
     Indication: HYPERURICAEMIA
     Dosage: UNK
     Route: 048
     Dates: start: 20130723
  8. TAZOBAC [Suspect]
     Active Substance: PIPERACILLIN SODIUM\TAZOBACTAM SODIUM
     Indication: INFECTION
     Dosage: UNK
     Route: 042
     Dates: start: 20130815
  9. PERENTEROL                         /00243701/ [Concomitant]
     Indication: DIARRHOEA
     Route: 048
  10. ZOFRAN [Concomitant]
     Active Substance: ONDANSETRON HYDROCHLORIDE
     Indication: NAUSEA
     Route: 048
  11. ACC                                /00082801/ [Concomitant]
     Indication: INFECTION
     Dosage: UNK
     Route: 048
     Dates: start: 20130810
  12. OXYGESIC AKUT [Concomitant]
     Active Substance: OXYCODONE
     Indication: PAIN
     Route: 048
  13. PARACODEINE [Concomitant]
     Indication: COUGH
     Route: 048
  14. PANTOZOL [Concomitant]
     Active Substance: PANTOPRAZOLE SODIUM
     Indication: PROPHYLAXIS AGAINST GASTROINTESTINAL ULCER
     Route: 048
  15. TARGIN [Concomitant]
     Active Substance: NALOXONE HYDROCHLORIDE\OXYCODONE HYDROCHLORIDE
     Indication: PAIN
     Route: 048
  16. IDEOS [Concomitant]
     Active Substance: CALCIUM CARBONATE\CHOLECALCIFEROL
     Indication: NUTRITIONAL SUPPLEMENTATION
  17. MACROGOL [Concomitant]
     Active Substance: POLYETHYLENE GLYCOLS
     Indication: CONSTIPATION
     Route: 048
  18. NOVAMINSULFON [Concomitant]
     Active Substance: METAMIZOLE
     Indication: PAIN
     Dosage: UNK
     Route: 048
     Dates: start: 20130730

REACTIONS (1)
  - Stevens-Johnson syndrome [Unknown]

NARRATIVE: CASE EVENT DATE: 20130826
